FAERS Safety Report 8397340-0 (Version None)
Quarter: 2012Q2

REPORT INFORMATION
  Report Type: 
  Country: None (occurrence: None)
  Receive Date: 20120531
  Receipt Date: 20120522
  Transmission Date: 20120825
  Serious: No
  Sender: FDA-Public Use
  Company Number: US-BIOGENIDEC-2012BI017987

PATIENT
  Age: 51 Year
  Sex: Female

DRUGS (3)
  1. TYSABRI [Suspect]
     Indication: MULTIPLE SCLEROSIS
     Route: 042
     Dates: start: 20110419
  2. AVONEX [Concomitant]
     Indication: MULTIPLE SCLEROSIS
     Route: 030
     Dates: start: 20090404
  3. AVONEX [Concomitant]
     Route: 030
     Dates: start: 20060524

REACTIONS (5)
  - HYPOAESTHESIA [None]
  - HEMIPARESIS [None]
  - MOBILITY DECREASED [None]
  - FATIGUE [None]
  - ASTHENIA [None]
